FAERS Safety Report 15688015 (Version 3)
Quarter: 2019Q2

REPORT INFORMATION
  Report Type: Spontaneous
  Country: JP (occurrence: JP)
  Receive Date: 20181205
  Receipt Date: 20190608
  Transmission Date: 20190711
  Serious: Yes (Hospitalization, Other)
  Sender: FDA-Public Use
  Company Number: JP-AMGEN-JPNSP2018094720

PATIENT
  Age: 79 Year
  Sex: Female
  Weight: 43 kg

DRUGS (15)
  1. MAGMITT [Concomitant]
     Active Substance: MAGNESIUM OXIDE
     Dosage: 330 MILLIGRAM, Q8H
     Route: 048
  2. KYPROLIS [Suspect]
     Active Substance: CARFILZOMIB
     Dosage: 35 MILLIGRAM, QD
     Route: 041
     Dates: start: 20180619, end: 20180619
  3. KYPROLIS [Suspect]
     Active Substance: CARFILZOMIB
     Dosage: UNK
     Route: 041
  4. LENADEX [Concomitant]
     Active Substance: DEXAMETHASONE ACETATE
     Dosage: UNK
     Route: 048
  5. DAIPHEN [Concomitant]
     Active Substance: SULFAMETHOXAZOLE\TRIMETHOPRIM
     Dosage: UNK
     Route: 048
  6. LANSOPRAZOLE. [Concomitant]
     Active Substance: LANSOPRAZOLE
     Dosage: 15 MILLIGRAM, EVERYDAY
     Route: 048
  7. CALONAL [Concomitant]
     Active Substance: ACETAMINOPHEN
     Dosage: 400 MILLIGRAM, Q8H
     Route: 048
  8. KYPROLIS [Suspect]
     Active Substance: CARFILZOMIB
     Indication: PLASMA CELL MYELOMA
     Dosage: 26 MILLIGRAM, QD
     Route: 041
     Dates: start: 20180605, end: 20180606
  9. REVLIMID [Concomitant]
     Active Substance: LENALIDOMIDE
     Indication: PLASMA CELL MYELOMA
     Dosage: 10 MILLIGRAM, EVERYDAY
     Route: 048
     Dates: start: 20180605, end: 20180619
  10. ASPIRIN [ACETYLSALICYLIC ACID] [Concomitant]
     Active Substance: ASPIRIN
     Dosage: 100 MILLIGRAM, EVERYDAY
     Route: 048
  11. LENADEX [Concomitant]
     Active Substance: DEXAMETHASONE ACETATE
     Indication: PLASMA CELL MYELOMA
     Dosage: 4 MILLIGRAM, EVERYDAY
     Route: 048
     Dates: start: 20180605, end: 20180620
  12. ASTRIC [Concomitant]
     Active Substance: ACYCLOVIR
     Dosage: 0.3 GRAM, EVERYDAY
     Route: 048
  13. KYPROLIS [Suspect]
     Active Substance: CARFILZOMIB
     Dosage: 35 MILLIGRAM
     Route: 041
     Dates: start: 20180612, end: 20180613
  14. WARKMIN [Concomitant]
     Active Substance: ALFACALCIDOL
     Dosage: 1 MICROGRAM, EVERYDAY
     Route: 048
  15. VESICARE [Concomitant]
     Active Substance: SOLIFENACIN SUCCINATE
     Dosage: 5 MILLIGRAM, EVERYDAY
     Route: 048

REACTIONS (3)
  - Drug reaction with eosinophilia and systemic symptoms [Recovered/Resolved]
  - Tumour lysis syndrome [Unknown]
  - Angioedema [Recovered/Resolved]

NARRATIVE: CASE EVENT DATE: 20180616
